FAERS Safety Report 7531667-7 (Version None)
Quarter: 2011Q2

REPORT INFORMATION
  Report Type: 
  Country: None (occurrence: None)
  Receive Date: 20110607
  Receipt Date: 20110607
  Transmission Date: 20111010
  Serious: Yes (Hospitalization)
  Sender: FDA-Public Use
  Company Number: None

PATIENT
  Sex: Female
  Weight: 147 kg

DRUGS (2)
  1. TAXOL [Suspect]
     Dosage: 270 MG
     Dates: start: 20110502
  2. CISPLATIN [Suspect]
     Dosage: 150 MG
     Dates: start: 20110503

REACTIONS (4)
  - DIARRHOEA [None]
  - ABDOMINAL TENDERNESS [None]
  - CONSTIPATION [None]
  - ANAL FISSURE [None]
